FAERS Safety Report 7154955-5 (Version None)
Quarter: 2010Q4

REPORT INFORMATION
  Report Type: 
  Country: None (occurrence: None)
  Receive Date: 20101214
  Receipt Date: 20091117
  Transmission Date: 20110411
  Serious: No
  Sender: FDA-Public Use
  Company Number: US-AMGEN-KDL375298

PATIENT

DRUGS (1)
  1. ENBREL [Suspect]
     Indication: PSORIASIS
     Dosage: 50 MG, QWK
     Route: 058
     Dates: start: 20050201

REACTIONS (9)
  - ADVERSE DRUG REACTION [None]
  - ASTHENIA [None]
  - FREQUENT BOWEL MOVEMENTS [None]
  - HERPES ZOSTER [None]
  - INTRAOCULAR PRESSURE INCREASED [None]
  - LETHARGY [None]
  - MYALGIA [None]
  - NERVOUSNESS [None]
  - SINUSITIS [None]
